FAERS Safety Report 7944763-7 (Version None)
Quarter: 2011Q4

REPORT INFORMATION
  Report Type: 
  Country: None (occurrence: None)
  Receive Date: 20111114
  Receipt Date: 20110926
  Transmission Date: 20120403
  Serious: No
  Sender: FDA-Public Use
  Company Number: 1000012004

PATIENT
  Age: 40 Year
  Sex: Female

DRUGS (2)
  1. HYOMAX [Concomitant]
  2. SAVELLA [Suspect]
     Indication: FIBROMYALGIA
     Dosage: SEE IMAGE
     Route: 048
     Dates: start: 20100211, end: 20100211

REACTIONS (6)
  - HYPERHIDROSIS [None]
  - CHEST DISCOMFORT [None]
  - NAUSEA [None]
  - HEART RATE INCREASED [None]
  - FLUSHING [None]
  - INSOMNIA [None]
